FAERS Safety Report 16430658 (Version 1)
Quarter: 2019Q2

REPORT INFORMATION
  Report Type: Spontaneous
  Country: MX (occurrence: MX)
  Receive Date: 20190614
  Receipt Date: 20190614
  Transmission Date: 20190711
  Serious: Yes (Other)
  Sender: FDA-Public Use
  Company Number: PHHY2019MX135554

PATIENT
  Age: 11 Year
  Sex: Female

DRUGS (2)
  1. RIFAMPICIN [Suspect]
     Active Substance: RIFAMPIN
     Indication: PSEUDOMONAS INFECTION
     Dosage: 7.5 MG/KG, Q12H
     Route: 065
  2. MEROPENEM. [Suspect]
     Active Substance: MEROPENEM
     Indication: PSEUDOMONAS INFECTION
     Dosage: 20 MG/KG, Q8H
     Route: 065

REACTIONS (6)
  - Cardiac disorder [Unknown]
  - Hypokinesia [Unknown]
  - Streptococcal infection [Recovered/Resolved]
  - Pulmonary hypertension [Unknown]
  - Pyrexia [Unknown]
  - Endocarditis [Unknown]
